FAERS Safety Report 25721999 (Version 1)
Quarter: 2025Q3

REPORT INFORMATION
  Report Type: Spontaneous
  Country: US (occurrence: None)
  Receive Date: 20250823
  Receipt Date: 20250823
  Transmission Date: 20251021
  Serious: Yes (Hospitalization)
  Sender: FDA-CTU
  Company Number: None

PATIENT
  Age: 50 Year
  Sex: Female
  Weight: 44.8 kg

DRUGS (2)
  1. XELODA [Suspect]
     Active Substance: CAPECITABINE
     Indication: Chemotherapy
     Dates: start: 20250617, end: 20250723
  2. XELODA [Suspect]
     Active Substance: CAPECITABINE
     Indication: Radiotherapy

REACTIONS (2)
  - Pericardial effusion [None]
  - Tachycardia [None]

NARRATIVE: CASE EVENT DATE: 20250731
